FAERS Safety Report 23295475 (Version 1)
Quarter: 2023Q4

REPORT INFORMATION
  Report Type: Spontaneous
  Country: US (occurrence: US)
  Receive Date: 20231214
  Receipt Date: 20231214
  Transmission Date: 20240110
  Serious: No
  Sender: FDA-Public Use
  Company Number: US-ALVOGEN-2022088601

PATIENT
  Sex: Female
  Weight: 69.39 kg

DRUGS (4)
  1. FENTANYL TRANSDERMAL SYSTEM [Suspect]
     Active Substance: FENTANYL
     Indication: Neuralgia
     Dosage: 9 MONTHS AGO, 50 MCG PATCHES, EXP:04/2025
     Dates: start: 20221027
  2. AMLODIPINE [Concomitant]
     Active Substance: AMLODIPINE BESYLATE
     Indication: Hypertension
  3. PANTOPRAZOLE [Concomitant]
     Active Substance: PANTOPRAZOLE
     Indication: Abdominal discomfort
  4. METHIMAZOLE [Concomitant]
     Active Substance: METHIMAZOLE
     Indication: Graves^ disease

REACTIONS (3)
  - Drug effect less than expected [Unknown]
  - Intentional product misuse [Unknown]
  - Device physical property issue [Unknown]

NARRATIVE: CASE EVENT DATE: 20220101
